FAERS Safety Report 5392505-4 (Version None)
Quarter: 2007Q3

REPORT INFORMATION
  Report Type: 
  Country: None (occurrence: None)
  Receive Date: 20070720
  Receipt Date: 20070702
  Transmission Date: 20080115
  Serious: Yes (Other)
  Sender: FDA-Public Use
  Company Number: PHBS2007NL12059

PATIENT
  Age: 49 Year
  Sex: Female

DRUGS (2)
  1. TEGRETOL [Suspect]
     Indication: EPILEPSY
     Dates: start: 19660101
  2. CONTRACEPTIVES NOS [Concomitant]
     Route: 048

REACTIONS (15)
  - ANGINA PECTORIS [None]
  - BLOOD PRESSURE INCREASED [None]
  - DIABETES MELLITUS [None]
  - DRUG EXPOSURE DURING PREGNANCY [None]
  - GESTATIONAL DIABETES [None]
  - GINGIVAL DISORDER [None]
  - INFARCTION [None]
  - NAUSEA [None]
  - PAIN [None]
  - POISONING [None]
  - RENAL DISORDER [None]
  - SKIN DISORDER [None]
  - TOOTH LOSS [None]
  - UNINTENDED PREGNANCY [None]
  - VOMITING [None]
